FAERS Safety Report 11013676 (Version 2)
Quarter: 2015Q2

REPORT INFORMATION
  Report Type: Spontaneous
  Country: US (occurrence: US)
  Receive Date: 20150411
  Receipt Date: 20150526
  Transmission Date: 20150821
  Serious: No
  Sender: FDA-Public Use
  Company Number: US-JNJFOC-20130806328

PATIENT
  Sex: Male

DRUGS (1)
  1. OXYTROL [Suspect]
     Active Substance: OXYBUTYNIN
     Indication: URINARY TRACT INFECTION
     Route: 048

REACTIONS (1)
  - Drug ineffective [Unknown]
